FAERS Safety Report 14839805 (Version 3)
Quarter: 2018Q3

REPORT INFORMATION
  Report Type: Report from Study
  Country: JP (occurrence: JP)
  Receive Date: 20180503
  Receipt Date: 20180809
  Transmission Date: 20181010
  Serious: Yes (Hospitalization, Other)
  Sender: FDA-Public Use
  Company Number: JP-BRISTOL-MYERS SQUIBB COMPANY-BMS-2018-039345

PATIENT
  Age: 57 Year
  Sex: Male

DRUGS (1)
  1. NIVOLUMAB [Suspect]
     Active Substance: NIVOLUMAB
     Indication: METASTATIC RENAL CELL CARCINOMA
     Dosage: 3 MG/KG, UNK
     Route: 041
     Dates: start: 20170131, end: 20171127

REACTIONS (4)
  - Adrenal insufficiency [Recovering/Resolving]
  - Cholangitis [Recovering/Resolving]
  - Brain cancer metastatic [Recovering/Resolving]
  - Jaundice cholestatic [Unknown]

NARRATIVE: CASE EVENT DATE: 20170314
